FAERS Safety Report 9228076 (Version 2)
Quarter: 2013Q2

REPORT INFORMATION
  Report Type: Report from Study
  Country: FR (occurrence: FR)
  Receive Date: 20130412
  Receipt Date: 20130514
  Transmission Date: 20140414
  Serious: Yes (Death, Other)
  Sender: FDA-Public Use
  Company Number: FR-ROCHE-1209043

PATIENT
  Sex: 0

DRUGS (4)
  1. ALTEPLASE [Suspect]
     Indication: ACUTE MYOCARDIAL INFARCTION
     Dosage: BOLUS OF 15 MG
     Route: 042
  2. ALTEPLASE [Suspect]
     Dosage: 0.75 MG/KG OF BODY WEIGHT (NOT TO EXCEED 50 MG) OVER A 30 MIN PERIOD AND THEN 0.50 MG/KG (NOT TO EXC
     Route: 042
  3. ASPIRIN [Suspect]
     Indication: ACUTE MYOCARDIAL INFARCTION
     Dosage: 250 - 500 MG ORAL OR INTRAVENOUS
     Route: 065
  4. HEPARIN [Suspect]
     Indication: ACUTE MYOCARDIAL INFARCTION
     Dosage: 5000 U BOLUS
     Route: 042

REACTIONS (8)
  - Cardiac death [Fatal]
  - Death [Fatal]
  - Infarction [Unknown]
  - Ischaemia [Unknown]
  - Myocardial ischaemia [Unknown]
  - Cardiogenic shock [Unknown]
  - Haemorrhage [Unknown]
  - Haemorrhagic stroke [Unknown]
